FAERS Safety Report 24588116 (Version 1)
Quarter: 2024Q4

REPORT INFORMATION
  Report Type: Spontaneous
  Country: US (occurrence: US)
  Receive Date: 20241107
  Receipt Date: 20241107
  Transmission Date: 20250115
  Serious: No
  Sender: TEVA
  Company Number: US-TEVA-VS-3258506

PATIENT
  Age: 50 Year

DRUGS (1)
  1. AUSTEDO [Suspect]
     Active Substance: DEUTETRABENAZINE
     Indication: Huntington^s disease
     Dosage: TIME INTERVAL: 0.33333333 DAYS
     Route: 065

REACTIONS (2)
  - Speech disorder [Unknown]
  - Product use issue [Unknown]
